FAERS Safety Report 19109721 (Version 1)
Quarter: 2021Q2

REPORT INFORMATION
  Report Type: Spontaneous
  Country: MT (occurrence: MT)
  Receive Date: 20210409
  Receipt Date: 20210409
  Transmission Date: 20210717
  Serious: Yes (Hospitalization, Other)
  Sender: FDA-Public Use
  Company Number: MT-SUN PHARMACEUTICAL INDUSTRIES LTD-2021R1-290443

PATIENT
  Age: 70 Year
  Sex: Male

DRUGS (1)
  1. COTRIMOXAZOLE [Suspect]
     Active Substance: SULFAMETHOXAZOLE\TRIMETHOPRIM
     Indication: PROSTATITIS
     Dosage: UNK
     Route: 065

REACTIONS (1)
  - Hyperkalaemia [Recovered/Resolved]
